FAERS Safety Report 12800660 (Version 2)
Quarter: 2016Q4

REPORT INFORMATION
  Report Type: Report from Study
  Country: DK (occurrence: DK)
  Receive Date: 20160930
  Receipt Date: 20161011
  Transmission Date: 20170207
  Serious: Yes (Other)
  Sender: FDA-Public Use
  Company Number: DK-TAKEDA-2016TUS017530

PATIENT
  Age: 32 Year
  Sex: Female

DRUGS (1)
  1. VORTIOXETINE [Suspect]
     Active Substance: VORTIOXETINE
     Indication: DEPRESSION
     Dosage: 10 MG, UNK
     Route: 065
     Dates: end: 20160406

REACTIONS (3)
  - Decreased interest [Recovered/Resolved]
  - Sleep disorder [Recovered/Resolved]
  - Suicidal ideation [Recovered/Resolved]

NARRATIVE: CASE EVENT DATE: 20160321
